FAERS Safety Report 6173777-5 (Version None)
Quarter: 2009Q2

REPORT INFORMATION
  Report Type: 
  Country: None (occurrence: None)
  Receive Date: 20090430
  Receipt Date: 20090423
  Transmission Date: 20091009
  Serious: Yes (Other)
  Sender: FDA-Public Use
  Company Number: GB-ABBOTT-09P-167-0569840-00

PATIENT
  Age: 18 Year
  Sex: Male

DRUGS (3)
  1. VALPROATE SODIUM [Suspect]
     Indication: DRUG USE FOR UNKNOWN INDICATION
  2. KEPPRA [Suspect]
     Indication: EPILEPSY
     Dates: start: 20090301
  3. KEPPRA [Suspect]
     Route: 065
     Dates: start: 20090301, end: 20090301

REACTIONS (2)
  - AGGRESSION [None]
  - PHYSICAL ASSAULT [None]
